FAERS Safety Report 6576507-8 (Version None)
Quarter: 2010Q1

REPORT INFORMATION
  Report Type: 
  Country: None (occurrence: None)
  Receive Date: 20100210
  Receipt Date: 20100201
  Transmission Date: 20100710
  Serious: Yes (Hospitalization)
  Sender: FDA-Public Use
  Company Number: FR-ASTRAZENECA-2010SE04829

PATIENT
  Age: 31414 Day
  Sex: Male

DRUGS (9)
  1. OMEPRAZOLE [Suspect]
     Route: 048
     Dates: start: 20090601, end: 20091202
  2. LASILIX SPECIAL 500 MG [Suspect]
     Indication: HYPERTENSION
     Route: 048
     Dates: start: 20090601
  3. SOTALOL [Suspect]
     Route: 048
     Dates: start: 20090601, end: 20091204
  4. TRIATEC [Suspect]
     Route: 048
     Dates: start: 20090909
  5. ZYLORIC [Suspect]
     Route: 048
     Dates: start: 20090609, end: 20091203
  6. KARDEGIC [Suspect]
     Route: 048
     Dates: start: 20090601
  7. DAFALGAN [Suspect]
     Route: 048
     Dates: start: 20090609
  8. ATARAX [Suspect]
     Route: 048
     Dates: start: 20090607
  9. SIMVASTATIN BIOGARAN [Suspect]
     Route: 048
     Dates: start: 20090601, end: 20091202

REACTIONS (1)
  - LICHENOID KERATOSIS [None]
